FAERS Safety Report 12971448 (Version 1)
Quarter: 2016Q4

REPORT INFORMATION
  Report Type: Spontaneous
  Country: US (occurrence: US)
  Receive Date: 20161123
  Receipt Date: 20161123
  Transmission Date: 20170207
  Serious: No
  Sender: FDA-Public Use
  Company Number: US-JAZZ-2016-US-020105

PATIENT
  Sex: Female

DRUGS (17)
  1. ADDERALL [Concomitant]
     Active Substance: AMPHETAMINE ASPARTATE\AMPHETAMINE SULFATE\DEXTROAMPHETAMINE SACCHARATE\DEXTROAMPHETAMINE SULFATE
  2. LAMICTAL [Concomitant]
     Active Substance: LAMOTRIGINE
  3. LEVSIN [Concomitant]
     Active Substance: HYOSCYAMINE SULFATE
  4. ESTRADIOL. [Concomitant]
     Active Substance: ESTRADIOL
  5. MELATONIN [Concomitant]
     Active Substance: MELATONIN
  6. PEPCID [Concomitant]
     Active Substance: FAMOTIDINE
  7. NAPROXEN SODIUM. [Concomitant]
     Active Substance: NAPROXEN SODIUM
  8. XYREM [Suspect]
     Active Substance: SODIUM OXYBATE
     Indication: NARCOLEPSY
     Dosage: 2.25 G, BID
     Route: 048
     Dates: start: 201608, end: 2016
  9. PREDNISONE. [Concomitant]
     Active Substance: PREDNISONE
  10. QVAR [Concomitant]
     Active Substance: BECLOMETHASONE DIPROPIONATE
  11. SYMBICORT-M [Concomitant]
  12. XYREM [Suspect]
     Active Substance: SODIUM OXYBATE
     Indication: CATAPLEXY
     Dosage: DOSE ADJUSTMENT
     Route: 048
     Dates: start: 2016, end: 2016
  13. XYREM [Suspect]
     Active Substance: SODIUM OXYBATE
     Dosage: 4.5 G, BID
     Route: 048
     Dates: start: 2016
  14. PROGESTERONE. [Concomitant]
     Active Substance: PROGESTERONE
  15. NASACORT ALLERGY 24HR [Concomitant]
     Active Substance: TRIAMCINOLONE ACETONIDE
  16. TYLENOL [Concomitant]
     Active Substance: ACETAMINOPHEN
  17. MULTIVITAMINS                      /07504101/ [Concomitant]

REACTIONS (1)
  - Tooth disorder [Unknown]
